FAERS Safety Report 9259924 (Version 1)
Quarter: 2013Q2

REPORT INFORMATION
  Report Type: Spontaneous
  Country: US (occurrence: US)
  Receive Date: 20130429
  Receipt Date: 20130429
  Transmission Date: 20140414
  Serious: No
  Sender: FDA-Public Use
  Company Number: US-TARO-2012P1016573

PATIENT
  Age: 48 Year
  Sex: Male
  Weight: 58.97 kg

DRUGS (3)
  1. HYDROCORTISONE 1% W/ACETIC ACID 2% OTIC SOLUTION USP [Suspect]
     Route: 001
     Dates: start: 20120419, end: 20120419
  2. OLIVE LEAF EXTRACT [Concomitant]
  3. KAVA KAVA [Concomitant]

REACTIONS (3)
  - Pain [Recovered/Resolved]
  - Burning sensation [Recovered/Resolved]
  - Ear pain [Recovered/Resolved]
